FAERS Safety Report 19198774 (Version 2)
Quarter: 2021Q2

REPORT INFORMATION
  Report Type: Spontaneous
  Country: US (occurrence: US)
  Receive Date: 20210429
  Receipt Date: 20210521
  Transmission Date: 20210717
  Serious: Yes (Hospitalization)
  Sender: FDA-Public Use
  Company Number: US-ASTRAZENECA-2021A345923

PATIENT
  Age: 4567 Week
  Sex: Male

DRUGS (3)
  1. BYDUREON BCISE [Suspect]
     Active Substance: EXENATIDE
     Indication: TYPE 2 DIABETES MELLITUS
     Route: 058
     Dates: start: 20210421
  2. BYDUREON [Suspect]
     Active Substance: EXENATIDE
     Indication: TYPE 2 DIABETES MELLITUS
     Route: 058
     Dates: end: 20210414
  3. INSULIN [Concomitant]
     Active Substance: INSULIN NOS

REACTIONS (9)
  - Hypoacusis [Unknown]
  - Visual impairment [Unknown]
  - Product dose omission issue [Unknown]
  - Renal disorder [Unknown]
  - Dysphonia [Unknown]
  - Dyspnoea [Unknown]
  - Loss of consciousness [Unknown]
  - Blood disorder [Unknown]
  - Device issue [Unknown]

NARRATIVE: CASE EVENT DATE: 20210421
